FAERS Safety Report 7128266-8 (Version None)
Quarter: 2010Q4

REPORT INFORMATION
  Report Type: 
  Country: None (occurrence: None)
  Receive Date: 20101130
  Receipt Date: 20101125
  Transmission Date: 20110411
  Serious: Yes (Hospitalization)
  Sender: FDA-Public Use
  Company Number: FR-SANOFI-AVENTIS-2010SA071629

PATIENT
  Age: 65 Year
  Sex: Female

DRUGS (10)
  1. SPECIAFOLDINE [Suspect]
     Dates: start: 20101006, end: 20101104
  2. KAYEXALATE [Suspect]
     Dates: end: 20101104
  3. SUNITINIB MALATE [Suspect]
     Indication: RENAL CANCER METASTATIC
     Dates: start: 20101006, end: 20101103
  4. MS CONTIN [Concomitant]
     Dates: end: 20101104
  5. MORPHINE [Concomitant]
     Dates: end: 20101104
  6. LEVOTHYROXINE SODIUM [Concomitant]
  7. AMLOR [Concomitant]
  8. CORTANCYL [Concomitant]
  9. ESOMEPRAZOLE [Concomitant]
  10. ACETAMINOPHEN [Concomitant]

REACTIONS (4)
  - HAEMORRHAGE [None]
  - STOMATITIS [None]
  - THROMBOCYTOPENIC PURPURA [None]
  - WOUND HAEMORRHAGE [None]
